FAERS Safety Report 8492602 (Version 2)
Quarter: 2012Q4

REPORT INFORMATION
  Report Type: Report from Study
  Country: FR (occurrence: FR)
  Receive Date: 20120403
  Receipt Date: 20120926
  Transmission Date: 20130627
  Serious: Yes (Hospitalization)
  Sender: FDA-Public Use
  Company Number: FR-ROCHE-1042599

PATIENT
  Age: 73 Year
  Sex: Male
  Weight: 70 kg

DRUGS (5)
  1. AVASTIN [Suspect]
     Indication: COLORECTAL CANCER METASTATIC
     Dosage: last dose was administered on 02/Mar/2012 and the dose was 300 mg, cycle 9
     Route: 042
     Dates: start: 20111118
  2. OXALIPLATIN [Suspect]
     Indication: COLORECTAL CANCER METASTATIC
     Dosage: last dose was administered on 02/Mar/2012 and the dose was 100 mg, cycle 9
     Route: 042
     Dates: start: 20111118
  3. ELVORINE [Suspect]
     Indication: COLORECTAL CANCER METASTATIC
     Dosage: last dose was administered on 02/Mar/2012 and the dose was 320 mg, cycle 9
     Route: 042
     Dates: start: 20111118
  4. 5-FU [Suspect]
     Indication: COLORECTAL CANCER METASTATIC
     Dosage: last dose was administered on 10/Feb/2012 and the dose was 690 mg, cycle 9
     Route: 040
     Dates: start: 20111118
  5. 5-FU [Suspect]
     Dosage: last dose was administered on 04/Mar/2012 and the dose was 2900 mg, cycle 9
     Route: 041
     Dates: start: 20111118

REACTIONS (3)
  - Febrile neutropenia [Recovered/Resolved]
  - Lung infection [Not Recovered/Not Resolved]
  - Lung disorder [Not Recovered/Not Resolved]
